FAERS Safety Report 25167743 (Version 1)
Quarter: 2025Q2

REPORT INFORMATION
  Report Type: Spontaneous
  Country: US (occurrence: None)
  Receive Date: 20250405
  Receipt Date: 20250405
  Transmission Date: 20250716
  Serious: Yes (Other)
  Sender: FDA-CTU
  Company Number: None

PATIENT
  Age: 72 Year
  Sex: Male
  Weight: 81 kg

DRUGS (9)
  1. XOLAIR [Suspect]
     Active Substance: OMALIZUMAB
  2. AJOVY [Concomitant]
     Active Substance: FREMANEZUMAB-VFRM
  3. HYDROCHLOROTHIAZIDE [Concomitant]
     Active Substance: HYDROCHLOROTHIAZIDE
  4. SINGULAIR [Concomitant]
     Active Substance: MONTELUKAST SODIUM
  5. POTASSIUM CITRATE [Concomitant]
     Active Substance: POTASSIUM CITRATE
  6. ZETIA [Concomitant]
     Active Substance: EZETIMIBE
  7. METFORMIN [Concomitant]
     Active Substance: METFORMIN HYDROCHLORIDE
  8. FLONASE [Concomitant]
     Active Substance: FLUTICASONE PROPIONATE
  9. Multiple vit. [Concomitant]

REACTIONS (4)
  - Diarrhoea [None]
  - Fatigue [None]
  - Ulcerative keratitis [None]
  - Blood immunoglobulin G decreased [None]

NARRATIVE: CASE EVENT DATE: 20250324
